FAERS Safety Report 22823885 (Version 2)
Quarter: 2023Q4

REPORT INFORMATION
  Report Type: Report from Study
  Country: TW (occurrence: TW)
  Receive Date: 20230815
  Receipt Date: 20231023
  Transmission Date: 20240109
  Serious: Yes (Life-Threatening, Hospitalization)
  Sender: FDA-Public Use
  Company Number: TW-GENMAB-2022-01150

PATIENT
  Age: 70 Year
  Sex: Female
  Weight: 56.5 kg

DRUGS (11)
  1. EPCORITAMAB [Suspect]
     Active Substance: EPCORITAMAB
     Indication: Diffuse large B-cell lymphoma stage II
     Dosage: C1D1
     Route: 058
     Dates: start: 20220804, end: 20220804
  2. EPCORITAMAB [Suspect]
     Active Substance: EPCORITAMAB
     Dosage: C1D8
     Route: 058
     Dates: start: 20220811, end: 20220811
  3. EPCORITAMAB [Suspect]
     Active Substance: EPCORITAMAB
     Dosage: C1D15-
     Route: 058
     Dates: start: 20220818
  4. ACETAMINOPHEN [Concomitant]
     Active Substance: ACETAMINOPHEN
     Indication: Premedication
     Dosage: 750 MILLIGRAM, SINGLE
     Route: 048
     Dates: start: 20221013, end: 20221013
  5. METHYLPREDNISOLONE [Concomitant]
     Active Substance: METHYLPREDNISOLONE
     Indication: Prophylaxis
     Dosage: 16 MILLIGRAM, SINGLE
     Route: 042
     Dates: start: 20221013, end: 20221013
  6. PREDNISOLONE [Concomitant]
     Active Substance: PREDNISOLONE
     Indication: Prophylaxis
     Dosage: 20 MILLIGRAM, QD
     Route: 048
     Dates: start: 20221014, end: 20221016
  7. BACIDE [SULFAMETHOXAZOLE;TRIMETHOPRIM] [Concomitant]
     Indication: Prophylaxis
     Dosage: 800 MILLIGRAM, BIW (SMX400 MG / TMP80 MG)
     Route: 048
     Dates: start: 20210513
  8. CHLORPHENIRAMINE [Concomitant]
     Active Substance: CHLORPHENIRAMINE
     Indication: Premedication
     Dosage: 5 MILLIGRAM, SINGLE
     Route: 042
     Dates: start: 20221013, end: 20221013
  9. LANSOPRAZOLE [Concomitant]
     Active Substance: LANSOPRAZOLE
     Indication: Prophylaxis
     Dosage: 30 MILLIGRAM, QD
     Route: 048
     Dates: start: 20220407
  10. NYSTATIN [Concomitant]
     Active Substance: NYSTATIN
     Indication: Prophylaxis
     Dosage: 500000 INTERNATIONAL UNIT, QID, GARGLE
     Route: 050
     Dates: start: 20210513
  11. SENNOSIDES A AND B [Concomitant]
     Active Substance: SENNOSIDES A AND B
     Indication: Prophylaxis
     Dosage: 15 MILLIGRAM, QD (QN)
     Route: 048
     Dates: start: 20220530

REACTIONS (1)
  - Cytomegalovirus viraemia [Recovered/Resolved]

NARRATIVE: CASE EVENT DATE: 20221013
